FAERS Safety Report 9674508 (Version 3)
Quarter: 2014Q1

REPORT INFORMATION
  Report Type: Spontaneous
  Country: FR (occurrence: FR)
  Receive Date: 20131107
  Receipt Date: 20140212
  Transmission Date: 20141002
  Serious: Yes (Hospitalization)
  Sender: FDA-Public Use
  Company Number: FR-ROCHE-1300250

PATIENT
  Age: 82 Year
  Sex: Female

DRUGS (5)
  1. LUCENTIS [Suspect]
     Indication: AGE-RELATED MACULAR DEGENERATION
     Route: 050
     Dates: start: 20090706
  2. INEXIUM [Suspect]
     Indication: PRODUCT USED FOR UNKNOWN INDICATION
     Route: 048
     Dates: end: 20130917
  3. LOXEN [Suspect]
     Indication: HYPERTENSION
     Route: 048
     Dates: end: 20130917
  4. PREDNISOLONE [Suspect]
     Indication: TEMPORAL ARTERITIS
     Route: 048
     Dates: start: 201306, end: 20130917
  5. FORLAX [Concomitant]

REACTIONS (1)
  - Thrombotic microangiopathy [Recovered/Resolved with Sequelae]
